FAERS Safety Report 11815332 (Version 1)
Quarter: 2015Q4

REPORT INFORMATION
  Report Type: Spontaneous
  Country: US (occurrence: US)
  Receive Date: 20151209
  Receipt Date: 20151209
  Transmission Date: 20160305
  Serious: No
  Sender: FDA-Public Use
  Company Number: US-MYLANLABS-2015M1034484

PATIENT
  Sex: Male
  Weight: 91.16 kg

DRUGS (8)
  1. OLANZAPINE. [Suspect]
     Active Substance: OLANZAPINE
     Dosage: 15 MG, HS
     Route: 048
  2. DEPAKOTE [Suspect]
     Active Substance: DIVALPROEX SODIUM
     Dosage: 250 MG, TID
     Route: 048
  3. HALDOL [Suspect]
     Active Substance: HALOPERIDOL
  4. ZYPREXA [Suspect]
     Active Substance: OLANZAPINE
  5. RISPERIDONE TABLETS, USP [Suspect]
     Active Substance: RISPERIDONE
     Dosage: 5 MG, QD
     Route: 048
  6. RISPERDAL [Suspect]
     Active Substance: RISPERIDONE
     Dosage: UNK
  7. VALPROIC [Suspect]
     Active Substance: VALPROIC ACID
     Dosage: 250 MG, TID
     Route: 048
  8. HALOPERIDOL. [Suspect]
     Active Substance: HALOPERIDOL

REACTIONS (1)
  - Dental caries [Not Recovered/Not Resolved]
